FAERS Safety Report 17581025 (Version 1)
Quarter: 2020Q1

REPORT INFORMATION
  Report Type: Report from Study
  Country: US (occurrence: US)
  Receive Date: 20200325
  Receipt Date: 20200325
  Transmission Date: 20200409
  Serious: Yes (Death)
  Sender: FDA-Public Use
  Company Number: US-ASTRAZENECA-2020SE41681

PATIENT
  Age: 20249 Day
  Sex: Male

DRUGS (5)
  1. LYNPARZA [Suspect]
     Active Substance: OLAPARIB
     Indication: PANCREATIC CARCINOMA
     Route: 048
  2. ADVIL [Concomitant]
     Active Substance: IBUPROFEN
  3. ATENOLOL-CHLORTHALIDON [Concomitant]
  4. LOW DOSE ASPIRIN EC [Concomitant]
  5. METFORMIN HCL [Concomitant]
     Active Substance: METFORMIN HYDROCHLORIDE

REACTIONS (1)
  - Death [Fatal]

NARRATIVE: CASE EVENT DATE: 20200310
